FAERS Safety Report 16411080 (Version 1)
Quarter: 2019Q2

REPORT INFORMATION
  Report Type: Spontaneous
  Country: FR (occurrence: FR)
  Receive Date: 20190610
  Receipt Date: 20190610
  Transmission Date: 20190711
  Serious: Yes (Other)
  Sender: FDA-Public Use
  Company Number: FR-MYLANLABS-2019M1052796

PATIENT
  Age: 14 Year
  Sex: Male
  Weight: 78 kg

DRUGS (1)
  1. METHYLPHENIDATE MYLAN [Suspect]
     Active Substance: METHYLPHENIDATE HYDROCHLORIDE
     Indication: ATTENTION DEFICIT/HYPERACTIVITY DISORDER
     Dosage: CF COMMENTS
     Route: 048
     Dates: start: 20181015, end: 20181108

REACTIONS (7)
  - Aggression [Recovered/Resolved]
  - Drug ineffective [Recovered/Resolved]
  - Bulimia nervosa [Recovered/Resolved]
  - Behaviour disorder [Recovered/Resolved]
  - Weight increased [Recovered/Resolved]
  - Memory impairment [Recovered/Resolved]
  - Anxiety [Recovered/Resolved]

NARRATIVE: CASE EVENT DATE: 20181022
